FAERS Safety Report 8231871-9 (Version None)
Quarter: 2012Q1

REPORT INFORMATION
  Report Type: 
  Country: None (occurrence: None)
  Receive Date: 20120323
  Receipt Date: 20120314
  Transmission Date: 20120608
  Serious: Yes (Other)
  Sender: FDA-Public Use
  Company Number: JP-VERTEX PHARMACEUTICALS INC.-AE-2012-004059

PATIENT
  Age: 52 Year
  Sex: Male

DRUGS (6)
  1. PEG-INTRON [Concomitant]
     Indication: HEPATITIS C
     Route: 058
     Dates: start: 20111216, end: 20120119
  2. TELAVIC (TELAPREVIR) [Suspect]
     Indication: HEPATITIS C
     Route: 048
     Dates: start: 20111216, end: 20120203
  3. RIBAVIRIN [Concomitant]
     Route: 048
     Dates: start: 20120106
  4. TELAVIC (TELAPREVIR) [Suspect]
     Route: 048
     Dates: start: 20120204
  5. PEG-INTRON [Concomitant]
     Route: 058
     Dates: start: 20120126
  6. RIBAVIRIN [Concomitant]
     Indication: HEPATITIS C
     Route: 048
     Dates: start: 20111216, end: 20120105

REACTIONS (7)
  - MALAISE [None]
  - ANAEMIA [None]
  - RETINAL HAEMORRHAGE [None]
  - DEPRESSIVE SYMPTOM [None]
  - PRURITUS [None]
  - HYPERURICAEMIA [None]
  - NAUSEA [None]
